FAERS Safety Report 9486490 (Version 1)
Quarter: 2013Q3

REPORT INFORMATION
  Report Type: Spontaneous
  Country: US (occurrence: US)
  Receive Date: 20130829
  Receipt Date: 20130829
  Transmission Date: 20140515
  Serious: No
  Sender: FDA-Public Use
  Company Number: US-009507513-1308USA014244

PATIENT
  Sex: Female

DRUGS (8)
  1. CLARITIN [Suspect]
     Indication: HEADACHE
     Dosage: 10 MG, ONCE
     Route: 048
     Dates: start: 20130815
  2. CLARITIN [Suspect]
     Indication: NASAL OEDEMA
  3. CLARITIN [Suspect]
     Indication: DYSPNOEA
  4. CLARITIN [Suspect]
     Indication: SENSATION OF PRESSURE
  5. CLARITIN [Suspect]
     Indication: EAR DISCOMFORT
  6. CLARITIN [Suspect]
     Indication: TOOTHACHE
  7. CLARITIN [Suspect]
     Indication: RESPIRATORY TRACT CONGESTION
  8. CLARITIN [Suspect]
     Indication: HYPERSENSITIVITY

REACTIONS (4)
  - Nasopharyngitis [Recovered/Resolved]
  - Sneezing [Recovering/Resolving]
  - Rhinorrhoea [Recovering/Resolving]
  - Drug effect delayed [Unknown]
